FAERS Safety Report 24245131 (Version 5)
Quarter: 2024Q4

REPORT INFORMATION
  Report Type: Spontaneous
  Country: JP (occurrence: JP)
  Receive Date: 20240823
  Receipt Date: 20241113
  Transmission Date: 20250115
  Serious: Yes (Other)
  Sender: CARA THERAPEUTICS
  Company Number: JP-CARA THERAPEUTICS, INC.-2024-00364-JP

PATIENT
  Age: 88 Year
  Sex: Male
  Weight: 72 kg

DRUGS (6)
  1. KORSUVA [Suspect]
     Active Substance: DIFELIKEFALIN ACETATE
     Indication: Pruritus
     Dosage: 35 ?G/ (35 ?G/     )
     Route: 042
     Dates: start: 20240612, end: 20240722
  2. WARFARIN POTASSIUM [Concomitant]
     Active Substance: WARFARIN POTASSIUM
     Indication: Atrial fibrillation
     Dosage: 1.75 MG/ DAY
     Route: 048
  3. TETRAFERRIC TRICITRATE DECAHYDRATE [Concomitant]
     Active Substance: TETRAFERRIC TRICITRATE DECAHYDRATE
     Indication: Chronic kidney disease
     Dosage: 4500 MG
     Route: 048
     Dates: start: 20231004, end: 20240722
  4. ROSUVASTATIN CALCIUM [Concomitant]
     Active Substance: ROSUVASTATIN CALCIUM
     Indication: Hyperlipidaemia
     Dosage: 5 MG
     Route: 048
     Dates: start: 20230628
  5. ZOLPIDEM TARTRATE [Concomitant]
     Active Substance: ZOLPIDEM TARTRATE
     Indication: Insomnia
     Dosage: 5 MG
     Route: 048
     Dates: start: 20230628
  6. EBASTINE [Concomitant]
     Active Substance: EBASTINE
     Indication: Pruritus
     Dosage: 10 MG
     Route: 048
     Dates: start: 20240625, end: 20240722

REACTIONS (1)
  - Dermatitis exfoliative generalised [Recovering/Resolving]

NARRATIVE: CASE EVENT DATE: 20240710
